FAERS Safety Report 19190866 (Version 1)
Quarter: 2021Q2

REPORT INFORMATION
  Report Type: Report from Study
  Country: IL (occurrence: IL)
  Receive Date: 20210428
  Receipt Date: 20210428
  Transmission Date: 20210717
  Serious: Yes (Hospitalization)
  Sender: FDA-Public Use
  Company Number: IL-TAKEDA-IL201941353

PATIENT
  Sex: Female

DRUGS (4)
  1. DIPYRONE [Concomitant]
     Active Substance: DIPYRONE
     Indication: CHOLECYSTECTOMY
  2. VELAGLUCERASE ALFA [Suspect]
     Active Substance: VELAGLUCERASE ALFA
     Indication: GAUCHER^S DISEASE
     Dosage: 15 INTERNATIONAL UNIT/KILOGRAM, 1X/2WKS (EVERY TWO WEEK)
     Route: 042
     Dates: start: 20100203
  3. TRAMADOL HYDROCHLORIDE. [Concomitant]
     Active Substance: TRAMADOL HYDROCHLORIDE
     Indication: CHOLECYSTECTOMY
  4. PARACETAMOL [Concomitant]
     Active Substance: ACETAMINOPHEN
     Indication: CHOLECYSTECTOMY

REACTIONS (2)
  - Ankle fracture [Recovering/Resolving]
  - Cholelithiasis [Recovered/Resolved]

NARRATIVE: CASE EVENT DATE: 20191125
